FAERS Safety Report 9322768 (Version 3)
Quarter: 2013Q3

REPORT INFORMATION
  Report Type: Report from Study
  Country: US (occurrence: US)
  Receive Date: 20130602
  Receipt Date: 20130704
  Transmission Date: 20140515
  Serious: Yes (Death)
  Sender: FDA-Public Use
  Company Number: US-ASTRAZENECA-2013SE38524

PATIENT
  Age: 28203 Day
  Sex: Male

DRUGS (22)
  1. AZD6140 [Suspect]
     Indication: CORONARY ARTERY DISEASE
     Route: 048
     Dates: start: 20120913, end: 20120913
  2. LISINOPRIL [Concomitant]
     Indication: CORONARY ARTERY DISEASE
     Route: 048
     Dates: start: 20120918
  3. HYDRALAZINE [Concomitant]
     Indication: HYPERTENSION
     Dates: start: 20120918
  4. SYMBICORT [Concomitant]
     Indication: DYSPNOEA
     Route: 055
     Dates: start: 20120918
  5. OXYCODONE [Concomitant]
     Indication: PAIN
     Route: 048
     Dates: start: 20120925
  6. AZATHIOPRINE [Concomitant]
     Indication: INFLAMMATORY BOWEL DISEASE
     Route: 048
  7. AMLODIPINE [Concomitant]
     Indication: CORONARY ARTERY DISEASE
     Route: 048
     Dates: start: 20120914
  8. CLONIDINE [Concomitant]
     Indication: HYPERTENSION
     Route: 048
  9. COREG [Concomitant]
     Indication: HYPERTENSION
     Route: 048
  10. NORVASC [Concomitant]
     Indication: HYPERTENSION
     Route: 048
     Dates: start: 20120925
  11. CHOLCHICINE [Concomitant]
     Indication: GOUT
     Route: 048
  12. DIGOXIN [Concomitant]
     Indication: CORONARY ARTERY DISEASE
     Route: 048
  13. PLAVIX [Concomitant]
     Indication: CORONARY ARTERY DISEASE
     Route: 048
     Dates: end: 20120912
  14. PLAVIX [Concomitant]
     Indication: CORONARY ARTERY DISEASE
     Route: 048
     Dates: start: 20120918
  15. DUONEB [Concomitant]
     Indication: DYSPNOEA
     Route: 055
     Dates: start: 20120918
  16. PREDNISONE [Concomitant]
     Indication: DYSPNOEA
     Route: 048
     Dates: start: 20120914
  17. ZANAFLEX [Concomitant]
     Indication: DYSPNOEA
     Route: 048
     Dates: start: 20120914
  18. ATIVAN [Concomitant]
     Indication: ANXIETY
     Route: 048
     Dates: start: 20120918
  19. COZAAR [Concomitant]
     Indication: HYPERTENSION
     Route: 048
     Dates: start: 20120914
  20. ASACOL [Concomitant]
     Indication: COLITIS ULCERATIVE
     Route: 048
     Dates: start: 20120925
  21. SPIRIVA [Concomitant]
     Indication: DYSPNOEA
     Route: 055
     Dates: start: 20120918
  22. ASA [Concomitant]
     Route: 048

REACTIONS (1)
  - Cardiomyopathy [Fatal]
